FAERS Safety Report 5704343-0 (Version None)
Quarter: 2008Q2

REPORT INFORMATION
  Report Type: 
  Country: None (occurrence: None)
  Receive Date: 20080411
  Receipt Date: 20080411
  Transmission Date: 20081010
  Serious: No
  Sender: FDA-Public Use
  Company Number: None

PATIENT
  Age: 60 Year
  Sex: Female

DRUGS (1)
  1. VICODIN [Suspect]
     Indication: OSTEOARTHRITIS
     Dosage: 5MG PO TID
     Route: 048
     Dates: start: 20080301

REACTIONS (1)
  - DRUG INEFFECTIVE [None]
